FAERS Safety Report 10020406 (Version 1)
Quarter: 2014Q1

REPORT INFORMATION
  Report Type: Spontaneous
  Country: US (occurrence: US)
  Receive Date: 20140319
  Receipt Date: 20140319
  Transmission Date: 20141002
  Serious: No
  Sender: FDA-Public Use
  Company Number: US-BIOGENIDEC-2014BI022432

PATIENT
  Age: 51 Year
  Sex: Male
  Weight: 83 kg

DRUGS (7)
  1. TECFIDERA [Suspect]
     Indication: MULTIPLE SCLEROSIS
     Route: 048
     Dates: start: 20140221, end: 20140227
  2. LYRICA [Concomitant]
  3. FENTANYL [Concomitant]
  4. WELLBUTRIN [Concomitant]
  5. TAMSULOSIN [Concomitant]
  6. VIT D [Concomitant]
  7. XANAX [Concomitant]
     Indication: SLEEP DISORDER

REACTIONS (7)
  - Dizziness [Unknown]
  - Sleep disorder [Unknown]
  - Balance disorder [Unknown]
  - Sedation [Unknown]
  - Fatigue [Unknown]
  - Musculoskeletal disorder [Unknown]
  - Back pain [Unknown]
